FAERS Safety Report 19027690 (Version 3)
Quarter: 2021Q2

REPORT INFORMATION
  Report Type: Spontaneous
  Country: US (occurrence: US)
  Receive Date: 20210319
  Receipt Date: 20210615
  Transmission Date: 20210717
  Serious: No
  Sender: FDA-Public Use
  Company Number: US-JNJFOC-20210322274

PATIENT
  Age: 56 Year
  Sex: Male
  Weight: 118.04 kg

DRUGS (2)
  1. BALVERSA [Suspect]
     Active Substance: ERDAFITINIB
     Indication: PRODUCT USED FOR UNKNOWN INDICATION
     Dosage: 2 TABLETS DAILY
     Route: 048
     Dates: start: 20201125
  2. BALVERSA [Suspect]
     Active Substance: ERDAFITINIB
     Dosage: 3 WEEKS AGO OF 25/NOV/2020, STARTED AS 1 TABLET A DAY
     Route: 048
     Dates: start: 2020

REACTIONS (1)
  - Onychomadesis [Recovering/Resolving]

NARRATIVE: CASE EVENT DATE: 20210310
